FAERS Safety Report 11106444 (Version 1)
Quarter: 2015Q2

REPORT INFORMATION
  Report Type: Spontaneous
  Country: GB (occurrence: GB)
  Receive Date: 20150512
  Receipt Date: 20150512
  Transmission Date: 20150821
  Serious: Yes (Disabling)
  Sender: FDA-Public Use
  Company Number: GB-TEVA-561400ACC

PATIENT
  Age: 78 Year
  Sex: Female
  Weight: 90 kg

DRUGS (5)
  1. ZAPAIN [Concomitant]
     Active Substance: ACETAMINOPHEN\CODEINE PHOSPHATE
     Dosage: UP TO 4 TIMES A DAY
     Route: 048
     Dates: start: 20120217
  2. AMLODIPINE [Suspect]
     Active Substance: AMLODIPINE BESYLATE
     Route: 065
  3. SALBUTAMOL [Concomitant]
     Active Substance: ALBUTEROL
     Dosage: 2 PUFFS AS REQUIRED.
     Route: 055
     Dates: start: 20111219
  4. DIAZEPAM. [Concomitant]
     Active Substance: DIAZEPAM
     Dosage: 1 IN MORNING 1 IN AFTERNOON. 2 AT NIGHT
     Dates: start: 20020709
  5. QVAR [Concomitant]
     Active Substance: BECLOMETHASONE DIPROPIONATE
     Dosage: 4 DOSAGE FORMS DAILY; 4 DOSAGE FORMS, 2 PUFFS TWICE A DAY.
     Route: 055
     Dates: start: 20111219

REACTIONS (1)
  - Joint swelling [Recovered/Resolved]

NARRATIVE: CASE EVENT DATE: 20141202
